FAERS Safety Report 6540114-3 (Version None)
Quarter: 2010Q1

REPORT INFORMATION
  Report Type: 
  Country: None (occurrence: None)
  Receive Date: 20100115
  Receipt Date: 20100104
  Transmission Date: 20100710
  Serious: Yes (Death)
  Sender: FDA-Public Use
  Company Number: US-PFIZER INC-2010000995

PATIENT
  Age: 51 Year
  Sex: Female

DRUGS (10)
  1. ALPRAZOLAM [Suspect]
     Route: 048
  2. GLIBENCLAMIDE [Suspect]
     Route: 048
  3. LISINOPRIL [Suspect]
     Route: 048
  4. BUPROPION [Suspect]
     Route: 048
  5. FLUOXETINE [Suspect]
     Route: 048
  6. ENALAPRIL [Suspect]
     Route: 048
  7. ZOLPIDEM [Suspect]
     Route: 048
  8. CYCLOBENZAPRINE [Suspect]
     Route: 048
  9. DICLOFENAC [Suspect]
     Route: 048
  10. LOVASTATIN [Suspect]
     Route: 048

REACTIONS (1)
  - COMPLETED SUICIDE [None]
